FAERS Safety Report 9752273 (Version 1)
Quarter: 2013Q4

REPORT INFORMATION
  Report Type: Spontaneous
  Country: US (occurrence: None)
  Receive Date: 20131211
  Receipt Date: 20131211
  Transmission Date: 20140711
  Serious: Yes (Life-Threatening, Other)
  Sender: FDA-Public Use
  Company Number: None

PATIENT
  Age: 49 Week
  Sex: Female

DRUGS (3)
  1. VENLAFAXINE ER [Suspect]
     Indication: DEPRESSION
     Dosage: ONE PILL/ONCE A DAY IN THE A.M, ONCE DAILY, TAKEN BY MOUTH
     Route: 048
     Dates: start: 20131121, end: 20131206
  2. VENLAFAXINE ER [Suspect]
     Indication: ANXIETY
     Dosage: ONE PILL/ONCE A DAY IN THE A.M, ONCE DAILY, TAKEN BY MOUTH
     Route: 048
     Dates: start: 20131121, end: 20131206
  3. VENLAFAXINE ER [Suspect]
     Indication: BIPOLAR DISORDER
     Dosage: ONE PILL/ONCE A DAY IN THE A.M, ONCE DAILY, TAKEN BY MOUTH
     Route: 048
     Dates: start: 20131121, end: 20131206

REACTIONS (5)
  - Yawning [None]
  - Anxiety [None]
  - Fear [None]
  - Drug ineffective [None]
  - Product substitution issue [None]
